FAERS Safety Report 5804556-3 (Version None)
Quarter: 2008Q3

REPORT INFORMATION
  Report Type: 
  Country: None (occurrence: None)
  Receive Date: 20080707
  Receipt Date: 20080707
  Transmission Date: 20090109
  Serious: Yes (Life-Threatening, Other)
  Sender: FDA-Public Use
  Company Number: None

PATIENT
  Age: 64 Year
  Sex: Male
  Weight: 124.7392 kg

DRUGS (1)
  1. DIGITEK 0.35MG MYLAN BERTEK [Suspect]
     Indication: HEART RATE ABNORMAL
     Dosage: 0.25 MG ONCE DAILY PO
     Route: 048
     Dates: start: 20060107, end: 20080110

REACTIONS (1)
  - ATRIAL FIBRILLATION [None]
